FAERS Safety Report 5843777-0 (Version None)
Quarter: 2008Q3

REPORT INFORMATION
  Report Type: 
  Country: None (occurrence: None)
  Receive Date: 20080808
  Receipt Date: 20080730
  Transmission Date: 20090109
  Serious: Yes (Life-Threatening, Other)
  Sender: FDA-Public Use
  Company Number: 2008AP001843

PATIENT
  Age: 37 Year
  Sex: Female

DRUGS (19)
  1. SERTRALINE HYDROCHLORIDE [Suspect]
     Indication: DEPRESSION
     Dosage: 100 MG; 50 MG;PO
     Route: 048
     Dates: start: 20061106, end: 20061206
  2. SERTRALINE HYDROCHLORIDE [Suspect]
     Indication: DEPRESSION
     Dosage: 100 MG; 50 MG;PO
     Route: 048
     Dates: start: 20051010
  3. BECLOMETHASONE DIPROPIONATE [Concomitant]
  4. DESOGESTREL (DESOGESTREL) [Concomitant]
  5. INFLUENZA VIRUS VACCINE POLYVALENT (INFLUENZA VIRUS VACCINE POLYVALENT [Concomitant]
  6. ACETOMENAPHTHONE (ACETOMENAPHTHONE) [Concomitant]
  7. DL-ALPHA TOCOPHERYL ACETATE (DL-ALPHA TOCOPHERYL ACETATE) [Concomitant]
  8. ASCORBIC ACID [Concomitant]
  9. BIOTIN [Concomitant]
  10. CALCIUM PANTOTHENATE (CALCIUM PANTOTHENATE) [Concomitant]
  11. FOLIC ACID [Concomitant]
  12. INOSITOL (INOSITOL) [Concomitant]
  13. NICOTINAMIDE [Concomitant]
  14. PYRIDOXINE HYDROCHLORIDE (PYRIDOXINE HYDROCHLORIDE) [Concomitant]
  15. RIBOFLAVIN (RIBOFLAVIN) [Concomitant]
  16. THIAMINE HCL [Concomitant]
  17. LACTULOSE [Concomitant]
  18. LACTULOSE [Concomitant]
  19. SALBUTAMOL (SALBUTAMOL) [Concomitant]

REACTIONS (4)
  - ANTIPHOSPHOLIPID SYNDROME [None]
  - RUBELLA ANTIBODY POSITIVE [None]
  - STILLBIRTH [None]
  - VAGINAL HAEMORRHAGE [None]
